FAERS Safety Report 5162378-3 (Version None)
Quarter: 2006Q4

REPORT INFORMATION
  Report Type: 
  Country: None (occurrence: None)
  Receive Date: 20061127
  Receipt Date: 20061127
  Transmission Date: 20070319
  Serious: Yes (Other)
  Sender: FDA-Public Use
  Company Number: None

PATIENT
  Age: 57 Year
  Sex: Female
  Weight: 45.3597 kg

DRUGS (1)
  1. CEREBYX [Suspect]
     Indication: CONVULSION
     Dosage: 100 MG ONE DOSE IV BOLUS
     Route: 040
     Dates: start: 20060815, end: 20060815

REACTIONS (2)
  - INFUSION RELATED REACTION [None]
  - PRURITUS [None]
